FAERS Safety Report 17140233 (Version 2)
Quarter: 2019Q4

REPORT INFORMATION
  Report Type: Report from Study
  Country: GB (occurrence: GB)
  Receive Date: 20191211
  Receipt Date: 20191225
  Transmission Date: 20200122
  Serious: Yes (Other)
  Sender: FDA-Public Use
  Company Number: NVSC2019GB065500

PATIENT
  Sex: Female

DRUGS (1)
  1. COSENTYX [Suspect]
     Active Substance: SECUKINUMAB
     Indication: PSORIASIS
     Dosage: 300 MG, QMO (PRE-FILLED PEN)
     Route: 058
     Dates: start: 20190619

REACTIONS (2)
  - Lower respiratory tract infection [Not Recovered/Not Resolved]
  - Malaise [Unknown]
